FAERS Safety Report 7555028-X (Version None)
Quarter: 2011Q2

REPORT INFORMATION
  Report Type: 
  Country: None (occurrence: None)
  Receive Date: 20110617
  Receipt Date: 20110614
  Transmission Date: 20111010
  Serious: Yes (Hospitalization, Other)
  Sender: FDA-Public Use
  Company Number: GB-PFIZER INC-2011107470

PATIENT
  Age: 33 Year
  Sex: Female
  Weight: 65 kg

DRUGS (2)
  1. VARENICLINE TARTRATE [Suspect]
     Indication: SMOKING CESSATION THERAPY
     Dosage: 1 MG, 2X/DAY
     Route: 048
     Dates: start: 20110210, end: 20110316
  2. CITALOPRAM [Concomitant]
     Dosage: UNK

REACTIONS (8)
  - SOCIAL AVOIDANT BEHAVIOUR [None]
  - SOMNOLENCE [None]
  - DEPRESSED MOOD [None]
  - DEPRESSION [None]
  - PSYCHOTIC DISORDER [None]
  - RESTLESSNESS [None]
  - DECREASED APPETITE [None]
  - AGITATION [None]
